FAERS Safety Report 25890538 (Version 1)
Quarter: 2025Q4

REPORT INFORMATION
  Report Type: Spontaneous
  Country: US (occurrence: None)
  Receive Date: 20251006
  Receipt Date: 20251006
  Transmission Date: 20260117
  Serious: Yes (Disabling)
  Sender: FDA-CTU
  Company Number: None

PATIENT
  Age: 82 Year
  Sex: Female
  Weight: 41.4 kg

DRUGS (26)
  1. METOCLOPRAMIDE [Suspect]
     Active Substance: METOCLOPRAMIDE
     Indication: Impaired gastric emptying
     Dosage: OTHER QUANTITY : 30 TABLET(S);?FREQUENCY : DAILY;?
     Route: 048
     Dates: start: 20250814, end: 20250816
  2. ELIQUIS [Concomitant]
     Active Substance: APIXABAN
  3. NEBIVOLOL [Concomitant]
     Active Substance: NEBIVOLOL
  4. SPIRONOLACTONE [Concomitant]
     Active Substance: SPIRONOLACTONE
  5. Dexlansoprasole [Concomitant]
  6. TOPIRAMATE [Concomitant]
     Active Substance: TOPIRAMATE
  7. LEVOTHYROXINE [Concomitant]
     Active Substance: LEVOTHYROXINE
  8. IPRATROPIUM BROMIDE [Concomitant]
     Active Substance: IPRATROPIUM BROMIDE
  9. FLONASE [Concomitant]
     Active Substance: FLUTICASONE PROPIONATE
  10. FLOVENT HFA [Concomitant]
     Active Substance: FLUTICASONE PROPIONATE
  11. AZELASTINE [Concomitant]
     Active Substance: AZELASTINE
  12. Inhaler as needed [Concomitant]
  13. ROBAXIN [Concomitant]
     Active Substance: METHOCARBAMOL
  14. LIBRAX [Concomitant]
     Active Substance: CHLORDIAZEPOXIDE HYDROCHLORIDE\CLIDINIUM BROMIDE
  15. BENTYL [Concomitant]
     Active Substance: DICYCLOMINE HYDROCHLORIDE
  16. Zophran Melts [Concomitant]
  17. Nasal Oxygen 2 ml [Concomitant]
  18. VITAMIN C [Concomitant]
     Active Substance: ASCORBIC ACID
  19. VITAMIN D3 [Concomitant]
     Active Substance: CHOLECALCIFEROL
  20. ZINC [Concomitant]
     Active Substance: ZINC
  21. Systane Eye Ointment [Concomitant]
  22. ALLEGRA [Concomitant]
     Active Substance: FEXOFENADINE HYDROCHLORIDE
  23. TYLENOL [Concomitant]
     Active Substance: ACETAMINOPHEN
  24. GAVISCON [Concomitant]
     Active Substance: ALUMINUM HYDROXIDE\MAGNESIUM CARBONATE
  25. Med Nasal Rinse [Concomitant]
  26. Senokot or Veggie Laxative [Concomitant]

REACTIONS (15)
  - Neck pain [None]
  - Musculoskeletal stiffness [None]
  - Muscle spasms [None]
  - Headache [None]
  - Gait disturbance [None]
  - Dizziness [None]
  - Posture abnormal [None]
  - Tachycardia [None]
  - Hypoaesthesia [None]
  - Muscle tightness [None]
  - Radiation associated pain [None]
  - Dysstasia [None]
  - Loss of personal independence in daily activities [None]
  - Drug ineffective [None]
  - Emotional distress [None]

NARRATIVE: CASE EVENT DATE: 20250816
